FAERS Safety Report 10751266 (Version 1)
Quarter: 2015Q1

REPORT INFORMATION
  Report Type: Spontaneous
  Country: US (occurrence: US)
  Receive Date: 20150130
  Receipt Date: 20150130
  Transmission Date: 20150721
  Serious: Yes (Hospitalization, Other)
  Sender: FDA-Public Use
  Company Number: US-BAYER-2015-012269

PATIENT
  Sex: Female
  Weight: 63.96 kg

DRUGS (23)
  1. COZAAR [Suspect]
     Active Substance: LOSARTAN POTASSIUM
  2. AVAPRO [Suspect]
     Active Substance: IRBESARTAN
     Indication: HYPERTENSION
  3. LEVAQUIN [Suspect]
     Active Substance: LEVOFLOXACIN
  4. DIOVAN [Suspect]
     Active Substance: VALSARTAN
  5. XANAX [Suspect]
     Active Substance: ALPRAZOLAM
     Dosage: 0.5 UNK, QD
  6. FUROSEMIDE. [Suspect]
     Active Substance: FUROSEMIDE
     Dosage: 20 MG, UNK
  7. LEVOTHYROXIN [Concomitant]
     Active Substance: LEVOTHYROXINE
  8. DILTIAZEM [Suspect]
     Active Substance: DILTIAZEM
     Dosage: SUSTAINED RELEASE CAPSULE
  9. PRINIVIL [Suspect]
     Active Substance: LISINOPRIL
     Route: 048
  10. BENICAR [Suspect]
     Active Substance: OLMESARTAN MEDOXOMIL
     Indication: HYPERTENSION
     Dosage: UNK
     Dates: start: 2007
  11. CIPRO [Suspect]
     Active Substance: CIPROFLOXACIN HYDROCHLORIDE
  12. NORVASC [Suspect]
     Active Substance: AMLODIPINE BESYLATE
     Indication: HYPERTENSION
     Dosage: 5 MG, QD
     Dates: start: 1997
  13. ATACAND [Suspect]
     Active Substance: CANDESARTAN CILEXETIL
     Dosage: 32 MG, QD
  14. NORVASC [Suspect]
     Active Substance: AMLODIPINE BESYLATE
     Indication: HYPERTENSION
     Dosage: 2.5 MG, QD
     Dates: start: 1995
  15. NORVASC [Suspect]
     Active Substance: AMLODIPINE BESYLATE
     Indication: HYPERTENSION
     Dosage: 5 MG, BID
     Dates: start: 2010
  16. HYDROCHLOROTHIAZIDE. [Suspect]
     Active Substance: HYDROCHLOROTHIAZIDE
  17. DEPAKOTE [Suspect]
     Active Substance: DIVALPROEX SODIUM
     Indication: SEIZURE
     Dosage: UNK
     Dates: start: 1996
  18. BYSTOLIC [Suspect]
     Active Substance: NEBIVOLOL HYDROCHLORIDE
  19. BACTRIM [Suspect]
     Active Substance: SULFAMETHOXAZOLE\TRIMETHOPRIM
  20. DILANTIN [Suspect]
     Active Substance: PHENYTOIN
     Dosage: UNK
     Dates: start: 1996
  21. MACROBID [Suspect]
     Active Substance: NITROFURANTOIN\NITROFURANTOIN MONOHYDRATE
  22. METOCLOPRAMIDE. [Suspect]
     Active Substance: METOCLOPRAMIDE
  23. LIDOCAINE HYDROCHLORIDE. [Suspect]
     Active Substance: LIDOCAINE HYDROCHLORIDE

REACTIONS (18)
  - Burning sensation [Unknown]
  - Weight decreased [Not Recovered/Not Resolved]
  - Dizziness [Recovered/Resolved]
  - Toe operation [Unknown]
  - Erythema [Unknown]
  - Blood count abnormal [Unknown]
  - Blood pressure increased [Unknown]
  - Cholecystectomy [Unknown]
  - Cystitis [Unknown]
  - Ingrowing nail [Recovered/Resolved]
  - Loss of consciousness [Unknown]
  - Palpitations [Recovered/Resolved]
  - Insomnia [Recovered/Resolved]
  - Hypertension [Not Recovered/Not Resolved]
  - Gastric dilatation [None]
  - Arteriosclerosis coronary artery [Unknown]
  - Headache [Recovered/Resolved]
  - Blood pressure increased [Unknown]

NARRATIVE: CASE EVENT DATE: 1995
